FAERS Safety Report 21507099 (Version 1)
Quarter: 2022Q4

REPORT INFORMATION
  Report Type: Report from Study
  Country: US (occurrence: US)
  Receive Date: 20221026
  Receipt Date: 20221026
  Transmission Date: 20230113
  Serious: No
  Sender: FDA-Public Use
  Company Number: US-ABBVIE-4134359

PATIENT
  Sex: Male

DRUGS (1)
  1. IMBRUVICA [Suspect]
     Active Substance: IBRUTINIB
     Indication: Chronic lymphocytic leukaemia
     Route: 048

REACTIONS (7)
  - White blood cell count abnormal [Unknown]
  - Weight decreased [Unknown]
  - Dry skin [Unknown]
  - Diabetes mellitus [Unknown]
  - Rash [Unknown]
  - Drug ineffective [Unknown]
  - Chronic lymphocytic leukaemia recurrent [Unknown]
